FAERS Safety Report 8608444-9 (Version None)
Quarter: 2012Q3

REPORT INFORMATION
  Report Type: 
  Country: None (occurrence: None)
  Receive Date: 20120808
  Receipt Date: 20120724
  Transmission Date: 20120928
  Serious: Yes (Life-Threatening)
  Sender: FDA-Public Use
  Company Number: BR-20120043

PATIENT
  Age: 61 Year
  Sex: Female

DRUGS (1)
  1. HEXABRIX [Suspect]
     Indication: ARTERIOGRAM CORONARY
     Dosage: UNK, (1 IN 1 TOTAL),
     Dates: start: 20120703, end: 20120703

REACTIONS (2)
  - SHOCK [None]
  - CARDIO-RESPIRATORY ARREST [None]
